FAERS Safety Report 6862510-7 (Version None)
Quarter: 2010Q3

REPORT INFORMATION
  Report Type: 
  Country: None (occurrence: None)
  Receive Date: 20100721
  Receipt Date: 20100712
  Transmission Date: 20110219
  Serious: Yes (Hospitalization)
  Sender: FDA-Public Use
  Company Number: JP-KINGPHARMUSA00001-K201000891

PATIENT
  Age: 14 Day
  Sex: Female
  Weight: 6.72 kg

DRUGS (2)
  1. LEVOXYL [Suspect]
     Indication: HYPOTHYROIDISM
     Dosage: 5 MCG, QD, UNK
  2. HYDROCORTISONE [Concomitant]
     Indication: CARDIOVASCULAR INSUFFICIENCY
     Dosage: 1 MG, BID

REACTIONS (5)
  - CARDIOVASCULAR INSUFFICIENCY [None]
  - HYPONATRAEMIA [None]
  - HYPOTENSION [None]
  - OEDEMA [None]
  - OLIGURIA [None]
